FAERS Safety Report 21731490 (Version 1)
Quarter: 2022Q4

REPORT INFORMATION
  Report Type: Report from Study
  Country: IT (occurrence: IT)
  Receive Date: 20221215
  Receipt Date: 20221215
  Transmission Date: 20230113
  Serious: Yes (Other)
  Sender: FDA-Public Use
  Company Number: None

PATIENT

DRUGS (6)
  1. PEGASPARGASE [Suspect]
     Active Substance: PEGASPARGASE
     Indication: Acute lymphocytic leukaemia recurrent
     Dosage: 1544 [IU], ON 19/09, 03, 31/10, 07, 14, 21/11/22
     Route: 042
     Dates: start: 20221031, end: 20221121
  2. METHOTREXATE SODIUM [Suspect]
     Active Substance: METHOTREXATE SODIUM
     Indication: Acute lymphocytic leukaemia recurrent
     Dosage: 154 MG/ DAY, IV ON 15/091.389 MG/DAY ON 15/09
     Route: 042
     Dates: start: 20220915, end: 20220915
  3. CYTARABINE [Suspect]
     Active Substance: CYTARABINE
     Indication: Acute lymphocytic leukaemia recurrent
     Dosage: 4 MG/ DAY FROM 28-SEP TO 30-SEP-2022
     Route: 042
     Dates: start: 20220928, end: 20220930
  4. IDARUBICIN [Suspect]
     Active Substance: IDARUBICIN
     Indication: Acute lymphocytic leukaemia recurrent
     Dosage: 9 MG, QD ON 31-OCT, 07-NOV, 14-NOV, 21-NOV-2022
     Route: 042
     Dates: start: 20221031, end: 20221121
  5. VINCRISTINE [Suspect]
     Active Substance: VINCRISTINE
     Indication: Acute lymphocytic leukaemia recurrent
     Dosage: 2 MG, QD ON 15-SEP, 20-SEP, 29-SEP, 31-OCT, 07-NOV, 14-NOV, 21-NOV-2022
     Route: 042
     Dates: start: 20220915, end: 20221121
  6. Decapeptyl [Concomitant]
     Indication: Product used for unknown indication
     Dosage: 1 FL I.M. ON 14/09, 06/10/22
     Route: 030
     Dates: start: 20220914, end: 20221006

REACTIONS (8)
  - Hepatocellular injury [Recovering/Resolving]
  - Pain in extremity [Recovering/Resolving]
  - Anaemia [Not Recovered/Not Resolved]
  - Jaundice hepatocellular [Recovering/Resolving]
  - Photophobia [Recovering/Resolving]
  - Escherichia infection [Recovered/Resolved]
  - Pancytopenia [Not Recovered/Not Resolved]
  - Constipation [Recovering/Resolving]

NARRATIVE: CASE EVENT DATE: 20220920
